FAERS Safety Report 4825540-2 (Version None)
Quarter: 2005Q4

REPORT INFORMATION
  Report Type: 
  Country: None (occurrence: None)
  Receive Date: 20051111
  Receipt Date: 20050822
  Transmission Date: 20060501
  Serious: No
  Sender: FDA-Public Use
  Company Number: US-GLAXOSMITHKLINE-A0571227A

PATIENT
  Age: 81 Year
  Sex: Male

DRUGS (11)
  1. AVODART [Suspect]
     Indication: BENIGN PROSTATIC HYPERPLASIA
     Dosage: .5MG PER DAY
     Route: 048
     Dates: start: 20041201
  2. FUROSEMIDE [Concomitant]
  3. ASPIRIN [Concomitant]
  4. TRICOR [Concomitant]
  5. MULTI-VITAMIN [Concomitant]
  6. NORVASC [Concomitant]
  7. CARDURA [Concomitant]
  8. PROTONIX [Concomitant]
  9. IMDUR [Concomitant]
  10. COREG [Concomitant]
  11. SYNTHROID [Concomitant]

REACTIONS (3)
  - MALABSORPTION [None]
  - MEDICATION RESIDUE [None]
  - PHARMACEUTICAL PRODUCT COMPLAINT [None]
